FAERS Safety Report 23401811 (Version 1)
Quarter: 2024Q1

REPORT INFORMATION
  Report Type: Report from Study
  Country: JP (occurrence: JP)
  Receive Date: 20240115
  Receipt Date: 20240115
  Transmission Date: 20240410
  Serious: No
  Sender: FDA-Public Use
  Company Number: JP-Merck Healthcare KGaA-2024000979

PATIENT
  Age: 85 Year
  Sex: Male

DRUGS (1)
  1. TEPMETKO [Suspect]
     Active Substance: TEPOTINIB HYDROCHLORIDE
     Indication: Lung neoplasm malignant
     Route: 048
     Dates: start: 20230524

REACTIONS (2)
  - Blood creatinine increased [Recovering/Resolving]
  - Oedema peripheral [Not Recovered/Not Resolved]
